FAERS Safety Report 7762174-4 (Version None)
Quarter: 2011Q3

REPORT INFORMATION
  Report Type: 
  Country: None (occurrence: None)
  Receive Date: 20110919
  Receipt Date: 20110919
  Transmission Date: 20111222
  Serious: Yes (Other)
  Sender: FDA-Public Use
  Company Number: None

PATIENT
  Sex: Male

DRUGS (1)
  1. SIMPONI 50MG SMARTJECT AUTOINJ 50MG CENTOCOR INC. [Suspect]
     Indication: RHEUMATOID ARTHRITIS
     Dosage: 50MG MONTHLY SC
     Route: 058
     Dates: start: 20101020, end: 20110830

REACTIONS (1)
  - LYMPHADENOPATHY [None]
